FAERS Safety Report 8880748 (Version 1)
Quarter: 2012Q4

REPORT INFORMATION
  Report Type: 
  Country: PT (occurrence: PT)
  Receive Date: 20121101
  Receipt Date: 20121101
  Transmission Date: 20130627
  Serious: Yes (Other)
  Sender: FDA-Public Use
  Company Number: PT-GLAXOSMITHKLINE-B0616254A

PATIENT
  Sex: Female

DRUGS (5)
  1. SERETIDE [Suspect]
     Indication: ASTHMA
     Dosage: 1PUFF Twice per day
     Route: 055
  2. UNSPECIFIED DRUGS [Concomitant]
  3. SINGULAIR [Concomitant]
  4. RUPATADINE FUMARATE [Concomitant]
  5. SPIRIVA [Concomitant]

REACTIONS (2)
  - Thrombocytopenia [Not Recovered/Not Resolved]
  - Platelet count decreased [Unknown]
